FAERS Safety Report 24287559 (Version 1)
Quarter: 2024Q3

REPORT INFORMATION
  Report Type: Report from Study
  Country: ZA (occurrence: ZA)
  Receive Date: 20240905
  Receipt Date: 20240905
  Transmission Date: 20241016
  Serious: Yes (Other)
  Sender: NOVARTIS
  Company Number: ZA-002147023-NVSC2024ZA177238

PATIENT
  Age: 62 Year
  Sex: Female

DRUGS (1)
  1. COSENTYX [Suspect]
     Active Substance: SECUKINUMAB
     Indication: Axial spondyloarthritis
     Dosage: 150 MG, QMO
     Route: 058
     Dates: start: 20240823

REACTIONS (4)
  - Headache [Unknown]
  - Swelling face [Unknown]
  - Pain in extremity [Unknown]
  - Anxiety [Unknown]

NARRATIVE: CASE EVENT DATE: 20240831
